FAERS Safety Report 10504540 (Version 1)
Quarter: 2014Q4

REPORT INFORMATION
  Report Type: Spontaneous
  Country: IT (occurrence: None)
  Receive Date: 20141006
  Receipt Date: 20141006
  Transmission Date: 20150528
  Serious: Yes (Death)
  Sender: FDA-Public Use
  Company Number: COR_00091_2014

PATIENT
  Sex: Female

DRUGS (2)
  1. CARBOPLATIN (CARBOPLATIN) [Suspect]
     Active Substance: CARBOPLATIN
     Indication: OVARIAN CANCER
     Dosage: 6MG/ML PER MIN, GIVEN OVER 30 MIN ONCE EVERY 3 WK, FOR 6 CYCLES
     Route: 042
  2. PACLITAXEL (PACLITAXEL) [Suspect]
     Active Substance: PACLITAXEL
     Indication: OVARIAN CANCER
     Dosage: 1X/21 DAYS, 175 MG/M2 EVERY 21 DAYS GIVEN OVER 3 HOURS FOR 6 CYCLES
     Route: 042

REACTIONS (1)
  - Intestinal perforation [None]
